FAERS Safety Report 13370702 (Version 1)
Quarter: 2017Q1

REPORT INFORMATION
  Report Type: Spontaneous
  Country: US (occurrence: US)
  Receive Date: 20170324
  Receipt Date: 20170324
  Transmission Date: 20170429
  Serious: No
  Sender: FDA-Public Use
  Company Number: US-BAYER-2017-056622

PATIENT
  Age: 46 Year
  Sex: Female

DRUGS (4)
  1. BETASERON [Suspect]
     Active Substance: INTERFERON BETA-1B
     Indication: MULTIPLE SCLEROSIS
     Dosage: 0.25 ML, QOD  (1-2 WEEKS)
     Route: 058
     Dates: start: 20161111
  2. BETASERON [Suspect]
     Active Substance: INTERFERON BETA-1B
     Indication: MULTIPLE SCLEROSIS
     Dosage: 0.75 ML, QOD  (5-6 WEEKS)
     Route: 058
     Dates: start: 20161111
  3. BETASERON [Suspect]
     Active Substance: INTERFERON BETA-1B
     Indication: MULTIPLE SCLEROSIS
     Dosage: 0.5 ML, QOD (3-4WEEKS)
     Route: 058
     Dates: start: 20161111
  4. BETASERON [Suspect]
     Active Substance: INTERFERON BETA-1B
     Indication: MULTIPLE SCLEROSIS
     Dosage: 1 ML, UNK ( 7+ WEEKS)

REACTIONS (1)
  - Injection site pain [Not Recovered/Not Resolved]
